FAERS Safety Report 6842662-5 (Version None)
Quarter: 2010Q3

REPORT INFORMATION
  Report Type: 
  Country: None (occurrence: None)
  Receive Date: 20100714
  Receipt Date: 20071109
  Transmission Date: 20110219
  Serious: No
  Sender: FDA-Public Use
  Company Number: US-PFIZER INC-2007065208

PATIENT
  Sex: Female
  Weight: 68.04 kg

DRUGS (2)
  1. CHANTIX [Suspect]
     Indication: SMOKING CESSATION THERAPY
     Dates: start: 20070717, end: 20070728
  2. ENALAPRIL MALEATE [Concomitant]

REACTIONS (4)
  - ABDOMINAL DISCOMFORT [None]
  - INSOMNIA [None]
  - NAUSEA [None]
  - NIGHTMARE [None]
